FAERS Safety Report 4554565-X (Version None)
Quarter: 2005Q1

REPORT INFORMATION
  Report Type: 
  Country: None (occurrence: None)
  Receive Date: 20050118
  Receipt Date: 20041222
  Transmission Date: 20050727
  Serious: Yes (Hospitalization, Other)
  Sender: FDA-Public Use
  Company Number: PHBS2004JP17225

PATIENT
  Age: 29 Year
  Sex: Male

DRUGS (4)
  1. ARA-C [Suspect]
     Indication: STEM CELL TRANSPLANT
     Dosage: 2 MG/M2/D
     Route: 065
  2. METHOTREXATE [Suspect]
     Indication: STEM CELL TRANSPLANT
     Route: 065
  3. CYCLOPHOSPHAMIDE [Concomitant]
     Dosage: 60 MG/KG/D
     Route: 065
  4. CYCLOSPORINE [Suspect]
     Indication: STEM CELL TRANSPLANT
     Route: 041

REACTIONS (4)
  - ERYTHEMA [None]
  - GRAFT VERSUS HOST DISEASE [None]
  - PAIN [None]
  - RASH [None]
